FAERS Safety Report 6305291-8 (Version None)
Quarter: 2009Q3

REPORT INFORMATION
  Report Type: 
  Country: None (occurrence: None)
  Receive Date: 20090811
  Receipt Date: 20090807
  Transmission Date: 20100115
  Serious: Yes (Life-Threatening, Hospitalization, Other)
  Sender: FDA-Public Use
  Company Number: PHHY2009BR33079

PATIENT
  Age: 5 Year
  Sex: Male
  Weight: 18 kg

DRUGS (3)
  1. TEGRETOL [Suspect]
     Dosage: UNK
     Route: 048
     Dates: start: 20090806
  2. CHLORDIAZEPOXIDE [Concomitant]
     Dosage: UNK
  3. PHENYTOIN [Concomitant]
     Dosage: UNK
     Dates: end: 20090807

REACTIONS (6)
  - ACCIDENTAL EXPOSURE [None]
  - COMA [None]
  - CONVULSION [None]
  - DRUG TOXICITY [None]
  - GAIT DISTURBANCE [None]
  - SOPOR [None]
